FAERS Safety Report 19433026 (Version 4)
Quarter: 2021Q3

REPORT INFORMATION
  Report Type: Spontaneous
  Country: US (occurrence: US)
  Receive Date: 20210618
  Receipt Date: 20210906
  Transmission Date: 20211014
  Serious: Yes (Other)
  Sender: FDA-Public Use
  Company Number: US-AMGEN-USASP2021093371

PATIENT
  Age: 48 Year
  Sex: Female
  Weight: 65.76 kg

DRUGS (5)
  1. ENBREL [Suspect]
     Active Substance: ETANERCEPT
     Indication: PSORIATIC ARTHROPATHY
     Dosage: UNK
     Route: 065
     Dates: start: 2005
  2. ENBREL [Suspect]
     Active Substance: ETANERCEPT
     Dosage: EVERY 10 DAYS
     Route: 065
     Dates: start: 2006, end: 202101
  3. ENBREL [Suspect]
     Active Substance: ETANERCEPT
     Dosage: WEEKLY (AT EVERY 7 DAYS)
     Route: 065
     Dates: start: 20210113, end: 2021
  4. TOZINAMERAN. [Suspect]
     Active Substance: TOZINAMERAN
     Dosage: DOSE 2, SINGLE
     Route: 065
     Dates: start: 202101, end: 202101
  5. TOZINAMERAN. [Suspect]
     Active Substance: TOZINAMERAN
     Indication: COVID-19 IMMUNISATION
     Dosage: DOSE 1, SINGLE
     Route: 065
     Dates: start: 202012, end: 202012

REACTIONS (3)
  - Psoriatic arthropathy [Recovering/Resolving]
  - Drug ineffective [Recovering/Resolving]
  - Off label use [Unknown]

NARRATIVE: CASE EVENT DATE: 2006
